FAERS Safety Report 14831944 (Version 2)
Quarter: 2018Q3

REPORT INFORMATION
  Report Type: Spontaneous
  Country: US (occurrence: US)
  Receive Date: 20180501
  Receipt Date: 20180801
  Transmission Date: 20181010
  Serious: Yes (Other)
  Sender: FDA-Public Use
  Company Number: US-MALLINCKRODT-T201801745

PATIENT
  Sex: Female
  Weight: 10 kg

DRUGS (1)
  1. H.P. ACTHAR [Suspect]
     Active Substance: CORTICOTROPIN
     Indication: INFANTILE SPASMS
     Dosage: 80 UNITS DAILY
     Route: 058
     Dates: start: 20180411, end: 20180429

REACTIONS (3)
  - Bradycardia [Unknown]
  - Hypothyroidism [Unknown]
  - Hypothermia [Unknown]
